FAERS Safety Report 8607455-7 (Version None)
Quarter: 2012Q3

REPORT INFORMATION
  Report Type: 
  Country: None (occurrence: None)
  Receive Date: 20120821
  Receipt Date: 20120817
  Transmission Date: 20120928
  Serious: Yes (Other)
  Sender: FDA-Public Use
  Company Number: US-BAYER-2012-085168

PATIENT
  Sex: Female

DRUGS (1)
  1. CIPROFLOXACIN HCL [Suspect]
     Dosage: UNK
     Dates: start: 20120809, end: 20120815

REACTIONS (3)
  - APHAGIA [None]
  - RASH [None]
  - FALL [None]
